FAERS Safety Report 7609347-9 (Version None)
Quarter: 2011Q3

REPORT INFORMATION
  Report Type: 
  Country: None (occurrence: None)
  Receive Date: 20110714
  Receipt Date: 20110706
  Transmission Date: 20111222
  Serious: Yes (Death, Other)
  Sender: FDA-Public Use
  Company Number: PHHY2009IT41115

PATIENT
  Sex: Male

DRUGS (3)
  1. SUTENT [Concomitant]
  2. TEMSIROLIMUS [Concomitant]
  3. ZOMETA [Suspect]
     Indication: METASTASES TO KIDNEY
     Dosage: 4 MG, MONTHLY
     Route: 042
     Dates: start: 20050601, end: 20061031

REACTIONS (2)
  - OSTEONECROSIS OF JAW [None]
  - DEATH [None]
